FAERS Safety Report 19062154 (Version 4)
Quarter: 2021Q4

REPORT INFORMATION
  Report Type: Spontaneous
  Country: US (occurrence: US)
  Receive Date: 20210326
  Receipt Date: 20211220
  Transmission Date: 20220303
  Serious: No
  Sender: FDA-Public Use
  Company Number: US-PFIZER INC-2019076333

PATIENT
  Age: 68 Year
  Sex: Female
  Weight: 61.69 kg

DRUGS (6)
  1. GENOTROPIN [Suspect]
     Active Substance: SOMATROPIN
     Indication: Pituitary-dependent Cushing^s syndrome
     Dosage: 0.3 MG, DAILY
  2. GENOTROPIN [Suspect]
     Active Substance: SOMATROPIN
     Indication: Growth hormone deficiency
     Dosage: 0.2 MG, DAILY
     Dates: start: 201902
  3. GENOTROPIN [Suspect]
     Active Substance: SOMATROPIN
     Dosage: 0.3 MG, DAILY
  4. GENOTROPIN [Suspect]
     Active Substance: SOMATROPIN
     Dosage: 0.4 MG, DAILY (5 DAYS/WK)
  5. GENOTROPIN [Suspect]
     Active Substance: SOMATROPIN
     Dosage: UNK
  6. GENOTROPIN [Suspect]
     Active Substance: SOMATROPIN
     Dosage: 12 MG, 1X/DAY (5 DAYS A WEEK)

REACTIONS (5)
  - Asthenia [Unknown]
  - Poor quality product administered [Unknown]
  - Product dose omission issue [Unknown]
  - Liquid product physical issue [Unknown]
  - Device leakage [Unknown]
